FAERS Safety Report 14906903 (Version 1)
Quarter: 2018Q2

REPORT INFORMATION
  Report Type: Report from Study
  Country: CA (occurrence: CA)
  Receive Date: 20180517
  Receipt Date: 20180517
  Transmission Date: 20180711
  Serious: Yes (Other)
  Sender: FDA-Public Use
  Company Number: CA-TAKEDA-2016TUS023011

PATIENT
  Age: 23 Year
  Sex: Female

DRUGS (4)
  1. MEROPENEM. [Concomitant]
     Active Substance: MEROPENEM
     Dosage: 250 ML, Q8HR
  2. ENTOCORT [Concomitant]
     Active Substance: BUDESONIDE
     Dosage: UNK, QD
     Dates: start: 20160811
  3. VEDOLIZUMAB [Suspect]
     Active Substance: VEDOLIZUMAB
     Indication: CROHN^S DISEASE
     Dosage: 300 MG, UNK
     Route: 042
     Dates: start: 20160902
  4. IMODIUM [Concomitant]
     Active Substance: LOPERAMIDE HYDROCHLORIDE
     Dosage: 2 MG, BID

REACTIONS (2)
  - Stoma closure [Recovered/Resolved]
  - Abscess [Unknown]

NARRATIVE: CASE EVENT DATE: 20180129
